FAERS Safety Report 8396976 (Version 5)
Quarter: 2013Q2

REPORT INFORMATION
  Report Type: Spontaneous
  Country: US (occurrence: US)
  Receive Date: 20120209
  Receipt Date: 20130425
  Transmission Date: 20140414
  Serious: Yes (Hospitalization, Other)
  Sender: FDA-Public Use
  Company Number: US-PFIZER INC-2012032153

PATIENT
  Age: 57 Year
  Sex: Female

DRUGS (2)
  1. DILANTIN [Suspect]
     Indication: GRAND MAL CONVULSION
     Dosage: 100MG 3 TABLETS EVERY NIGHT
     Route: 048
     Dates: start: 20080519, end: 20080611
  2. DILANTIN [Suspect]
     Indication: GRAND MAL CONVULSION
     Dosage: 100MG 3 CAPSULES EVERY NIGHT, DAILY
     Route: 048
     Dates: start: 20080520, end: 20080611

REACTIONS (1)
  - Stevens-Johnson syndrome [Recovered/Resolved]
